FAERS Safety Report 5388699-7 (Version None)
Quarter: 2007Q3

REPORT INFORMATION
  Report Type: 
  Country: None (occurrence: None)
  Receive Date: 20070712
  Receipt Date: 20070709
  Transmission Date: 20080115
  Serious: Yes (Death, Life-Threatening, Hospitalization, Other)
  Sender: FDA-Public Use
  Company Number: 200707AGG00665

PATIENT
  Age: 85 Year
  Sex: Male

DRUGS (4)
  1. AGGRASTAT [Suspect]
     Indication: ACUTE CORONARY SYNDROME
     Dosage: (50 MCG/ML FOR 1 DAY INTRAVENOUS (NOT OTHERWISE SPECIFIED))
     Route: 042
     Dates: start: 20070228, end: 20070301
  2. ASPIRIN [Suspect]
     Indication: ACUTE CORONARY SYNDROME
     Dosage: (75 MG QD ORAL)
     Route: 048
  3. ENOXAPARIN SODIUM [Suspect]
     Indication: ACUTE CORONARY SYNDROME
     Dosage: SUBCUTANEOUS
     Route: 058
     Dates: start: 20070227
  4. CLOPIDOGREL BISULFATE [Suspect]
     Indication: ACUTE CORONARY SYNDROME
     Dosage: (75 MG QD ORAL)
     Route: 048
     Dates: start: 20070227

REACTIONS (6)
  - ACUTE CORONARY SYNDROME [None]
  - BRAIN STEM INFARCTION [None]
  - CEREBRAL HAEMORRHAGE [None]
  - GLOMERULAR FILTRATION RATE DECREASED [None]
  - SUBDURAL HAEMATOMA [None]
  - TROPONIN I INCREASED [None]
